FAERS Safety Report 7619703-0 (Version None)
Quarter: 2011Q3

REPORT INFORMATION
  Report Type: 
  Country: None (occurrence: None)
  Receive Date: 20110719
  Receipt Date: 20110706
  Transmission Date: 20111222
  Serious: Yes (Hospitalization, Other)
  Sender: FDA-Public Use
  Company Number: US-CELGENEUS-163-21880-11053649

PATIENT
  Sex: Male

DRUGS (10)
  1. FISH OIL [Concomitant]
     Route: 065
  2. REVLIMID [Suspect]
     Dosage: 25 MILLIGRAM
     Route: 048
     Dates: start: 20100312
  3. REVLIMID [Suspect]
     Dosage: 10MG-15MG
     Route: 048
     Dates: start: 20101201
  4. ASPIRIN [Concomitant]
     Route: 065
  5. MULTI-VITAMINS [Concomitant]
     Route: 065
  6. VYTORIN [Concomitant]
     Route: 065
  7. PROTONIX [Concomitant]
     Route: 065
  8. ACTOS [Concomitant]
     Route: 065
  9. BENAZEPRIL HYDROCHLORIDE [Concomitant]
     Route: 065
  10. METFORMIN HCL [Concomitant]
     Route: 065

REACTIONS (6)
  - FULL BLOOD COUNT DECREASED [None]
  - HAEMATOCHEZIA [None]
  - RENAL FAILURE [None]
  - HAEMORRHAGE [None]
  - DEHYDRATION [None]
  - HYPERGLYCAEMIA [None]
